FAERS Safety Report 8608906-4 (Version None)
Quarter: 2012Q3

REPORT INFORMATION
  Report Type: 
  Country: None (occurrence: None)
  Receive Date: 20120806
  Receipt Date: 20120726
  Transmission Date: 20120928
  Serious: Yes (Other)
  Sender: FDA-Public Use
  Company Number: AUR-APL-2012-03261

PATIENT
  Age: 21 Year
  Sex: Female

DRUGS (3)
  1. LAMOTRIGINE [Suspect]
     Indication: PRODUCT USED FOR UNKNOWN INDICATION
     Dosage: SEE IMAGE
  2. LAMOTRIGINE [Suspect]
     Indication: EPILEPSY
     Dosage: SEE IMAGE
  3. FOLIC ACID [Concomitant]

REACTIONS (4)
  - CONVULSION [None]
  - MATERNAL EXPOSURE BEFORE PREGNANCY [None]
  - PREMATURE LABOUR [None]
  - MATERNAL EXPOSURE DURING PREGNANCY [None]
